FAERS Safety Report 13462610 (Version 1)
Quarter: 2017Q2

REPORT INFORMATION
  Report Type: Report from Study
  Country: BR (occurrence: BR)
  Receive Date: 20170420
  Receipt Date: 20170420
  Transmission Date: 20170830
  Serious: Yes (Other)
  Sender: FDA-Public Use
  Company Number: PHHY2017BR058788

PATIENT
  Sex: Male
  Weight: 65 kg

DRUGS (1)
  1. EXELON [Suspect]
     Active Substance: RIVASTIGMINE TARTRATE
     Indication: DEMENTIA ALZHEIMER^S TYPE
     Dosage: 1 DF, QD
     Route: 048

REACTIONS (9)
  - Neurodegenerative disorder [Unknown]
  - Nausea [Recovered/Resolved]
  - Drug intolerance [Unknown]
  - Nightmare [Recovered/Resolved]
  - Gastric disorder [Unknown]
  - Weight decreased [Unknown]
  - Insomnia [Unknown]
  - Vomiting [Recovered/Resolved]
  - Malaise [Unknown]
